FAERS Safety Report 9678263 (Version 2)
Quarter: 2013Q4

REPORT INFORMATION
  Report Type: Spontaneous
  Country: US (occurrence: US)
  Receive Date: 20131108
  Receipt Date: 20131202
  Transmission Date: 20140711
  Serious: Yes (Hospitalization)
  Sender: FDA-Public Use
  Company Number: US-PFIZER INC-2013315162

PATIENT
  Age: 67 Year
  Sex: Female
  Weight: 81.63 kg

DRUGS (5)
  1. LYRICA [Suspect]
     Indication: NEURALGIA
     Dosage: 75 MG, 2X/DAY
  2. LYRICA [Suspect]
     Dosage: 75 MG, 2X/DAY
  3. LYRICA [Suspect]
     Dosage: 25 MG, WEEKLY
  4. LYRICA [Suspect]
     Dosage: 75 MG, 2X/DAY
  5. BISOPROLOL/HYDROCHLOROTHIAZIDE [Concomitant]
     Indication: HYPERTENSION
     Dosage: (BISOPROLOL FUMARATE 5MG, HYDROCHLOROTHIAZIDE 6.25MG), 1X/DAY

REACTIONS (2)
  - Back disorder [Unknown]
  - Neuralgia [Unknown]
